FAERS Safety Report 18615517 (Version 1)
Quarter: 2020Q4

REPORT INFORMATION
  Report Type: Spontaneous
  Country: SI (occurrence: SI)
  Receive Date: 20201215
  Receipt Date: 20201215
  Transmission Date: 20210114
  Serious: Yes (Other)
  Sender: FDA-Public Use
  Company Number: SI-AMGEN-SVNSP2020202244

PATIENT
  Sex: Female

DRUGS (8)
  1. AMYZOL [AMITRIPTYLINE] [Concomitant]
     Indication: PROPHYLAXIS
     Dosage: UNK
     Route: 065
  2. VITAMIN B COMPLEX [Concomitant]
     Active Substance: CYANOCOBALAMIN\DEXPANTHENOL\NIACINAMIDE\PYRIDOXINE HYDROCHLORIDE\RIBOFLAVIN 5^-PHOSPHATE SODIUM\THIAMINE HYDROCHLORIDE\VITAMIN B COMPLEX
     Indication: PROPHYLAXIS
     Dosage: UNK
     Route: 065
  3. PROPRANOLOL [Concomitant]
     Active Substance: PROPRANOLOL HYDROCHLORIDE
     Indication: PROPHYLAXIS
     Dosage: UNK
     Route: 065
  4. TOPAMAX [Concomitant]
     Active Substance: TOPIRAMATE
     Indication: PROPHYLAXIS
     Dosage: UNK
     Route: 065
  5. AIMOVIG [Suspect]
     Active Substance: ERENUMAB-AOOE
     Indication: MIGRAINE
     Dosage: 140 MG
     Route: 065
     Dates: start: 20200206
  6. AIMOVIG [Suspect]
     Active Substance: ERENUMAB-AOOE
     Dosage: UNK
     Route: 065
     Dates: start: 20200919
  7. AIMOVIG [Suspect]
     Active Substance: ERENUMAB-AOOE
     Dosage: UNK
     Route: 065
     Dates: start: 20200822
  8. MAGNESIUM [Concomitant]
     Active Substance: MAGNESIUM
     Indication: PROPHYLAXIS
     Dosage: UNK
     Route: 065

REACTIONS (30)
  - General physical health deterioration [Unknown]
  - Pain [Unknown]
  - Spontaneous haematoma [Unknown]
  - Musculoskeletal chest pain [Unknown]
  - Suicidal ideation [Unknown]
  - Dyspnoea [Unknown]
  - Joint stiffness [Unknown]
  - Feeling abnormal [Unknown]
  - Chest pain [Unknown]
  - Neck pain [Unknown]
  - Myalgia [Unknown]
  - Cough [Unknown]
  - Vomiting [Unknown]
  - Injection site erythema [Unknown]
  - Pain in extremity [Unknown]
  - Phonophobia [Unknown]
  - Fatigue [Unknown]
  - Paraesthesia [Unknown]
  - Mental disorder [Unknown]
  - Insomnia [Unknown]
  - Headache [Unknown]
  - Influenza like illness [Unknown]
  - Photophobia [Unknown]
  - Constipation [Unknown]
  - Migraine [Unknown]
  - Chills [Unknown]
  - Somnolence [Unknown]
  - Arthralgia [Unknown]
  - Chest discomfort [Unknown]
  - Irritability [Unknown]

NARRATIVE: CASE EVENT DATE: 20200822
